FAERS Safety Report 7362271-1 (Version None)
Quarter: 2011Q1

REPORT INFORMATION
  Report Type: 
  Country: None (occurrence: None)
  Receive Date: 20110318
  Receipt Date: 20110307
  Transmission Date: 20110831
  Serious: Yes (Other)
  Sender: FDA-Public Use
  Company Number: PHHY2011US19264

PATIENT
  Sex: Female

DRUGS (2)
  1. GILENYA [Suspect]
     Indication: MULTIPLE SCLEROSIS
     Dosage: 0.5 MG, DAILY
     Route: 048
     Dates: start: 20110221
  2. ADDERALL 10 [Concomitant]
     Dosage: UNK

REACTIONS (4)
  - COUGH [None]
  - HEART RATE IRREGULAR [None]
  - HEADACHE [None]
  - FATIGUE [None]
